FAERS Safety Report 17762810 (Version 1)
Quarter: 2020Q2

REPORT INFORMATION
  Report Type: Spontaneous
  Country: US (occurrence: US)
  Receive Date: 20200509
  Receipt Date: 20200509
  Transmission Date: 20200714
  Serious: No
  Sender: FDA-Public Use
  Company Number: US-TEVA-2020-US-1232833

PATIENT
  Age: 62 Year
  Sex: Male
  Weight: 59.1 kg

DRUGS (7)
  1. COPAXONE [Suspect]
     Active Substance: GLATIRAMER ACETATE
     Indication: MULTIPLE SCLEROSIS
     Dosage: ROUTE: UNKNOWN
     Route: 065
     Dates: start: 201711, end: 20190417
  2. VALIUM [Concomitant]
     Active Substance: DIAZEPAM
     Indication: DYSKINESIA
  3. OXYBUTYNIN. [Concomitant]
     Active Substance: OXYBUTYNIN CHLORIDE
     Indication: BLADDER DISORDER
     Route: 065
  4. MORPHINE 15 MG ER [Concomitant]
     Route: 065
  5. PLAVIX [Concomitant]
     Active Substance: CLOPIDOGREL BISULFATE
     Indication: THROMBOSIS
     Route: 065
  6. MORPHINE 15 MG IR [Concomitant]
     Route: 065
  7. VALIUM [Concomitant]
     Active Substance: DIAZEPAM
     Indication: MUSCLE SPASTICITY

REACTIONS (16)
  - Rash [Unknown]
  - Pain of skin [Not Recovered/Not Resolved]
  - Ear pain [Not Recovered/Not Resolved]
  - Needle issue [Unknown]
  - Urticaria [Not Recovered/Not Resolved]
  - Ear swelling [Not Recovered/Not Resolved]
  - Injection site mass [Unknown]
  - Joint swelling [Not Recovered/Not Resolved]
  - Peripheral swelling [Not Recovered/Not Resolved]
  - Rash [Not Recovered/Not Resolved]
  - Eye swelling [Unknown]
  - Hypersensitivity [Not Recovered/Not Resolved]
  - Skin mass [Not Recovered/Not Resolved]
  - Erythema [Not Recovered/Not Resolved]
  - Pain [Not Recovered/Not Resolved]
  - Device issue [Unknown]

NARRATIVE: CASE EVENT DATE: 20190417
